FAERS Safety Report 21275486 (Version 1)
Quarter: 2022Q3

REPORT INFORMATION
  Report Type: Spontaneous
  Country: CN (occurrence: CN)
  Receive Date: 20220831
  Receipt Date: 20220831
  Transmission Date: 20221027
  Serious: Yes (Hospitalization, Other)
  Sender: FDA-Public Use
  Company Number: CN-LUNDBECK-DKLU3051844

PATIENT
  Sex: Female
  Weight: 45 kg

DRUGS (2)
  1. CITALOPRAM HYDROBROMIDE [Suspect]
     Active Substance: CITALOPRAM HYDROBROMIDE
     Indication: Intentional overdose
     Dosage: OVERDOSE: 7 DOSAGE FORMS
     Route: 048
     Dates: start: 20220310, end: 20220310
  2. DICLOFENAC SODIUM [Suspect]
     Active Substance: DICLOFENAC SODIUM
     Indication: Intentional overdose
     Dosage: 8 DF
     Route: 048
     Dates: start: 20220310, end: 20220310

REACTIONS (4)
  - Toxicity to various agents [Recovering/Resolving]
  - Depression [Unknown]
  - Refusal of examination [Unknown]
  - Intentional overdose [Unknown]

NARRATIVE: CASE EVENT DATE: 20220310
